FAERS Safety Report 8111716-8 (Version None)
Quarter: 2012Q1

REPORT INFORMATION
  Report Type: 
  Country: None (occurrence: None)
  Receive Date: 20120203
  Receipt Date: 20120120
  Transmission Date: 20120608
  Serious: Yes (Hospitalization, Other)
  Sender: FDA-Public Use
  Company Number: US-RANBAXY-2012RR-51982

PATIENT
  Sex: Male
  Weight: 80 kg

DRUGS (8)
  1. FAMOTIDINE [Suspect]
     Indication: DYSPEPSIA
     Dosage: 20 MG, BID
     Route: 048
     Dates: start: 20110101
  2. LEVAQUIN [Suspect]
     Indication: SURGERY
     Dosage: 500 MG, QD
     Route: 048
     Dates: start: 20110601, end: 20110625
  3. LIPITOR [Concomitant]
     Indication: BLOOD CHOLESTEROL
     Dosage: 40 MG, QD
     Route: 048
     Dates: start: 20060101
  4. PLAVIX [Concomitant]
     Indication: BLOOD CHOLESTEROL INCREASED
     Dosage: 75 MG, QD
     Route: 048
  5. ZETIA [Concomitant]
     Indication: BLOOD CHOLESTEROL
     Dosage: 10 MG, QD
     Route: 048
     Dates: start: 20100101
  6. QUINAPRIL [Concomitant]
     Indication: BLOOD PRESSURE
     Dosage: 10 MG, QD
     Route: 048
     Dates: start: 20080101
  7. FENOFIBRATE [Concomitant]
     Indication: BLOOD CHOLESTEROL
     Dosage: 200 MG, QD
     Route: 048
  8. ACTOS [Concomitant]
     Indication: PRODUCT USED FOR UNKNOWN INDICATION
     Dosage: 15 MG, QD
     Route: 048
     Dates: end: 20110101

REACTIONS (3)
  - HEART RATE INCREASED [None]
  - MYOCARDIAL INFARCTION [None]
  - TENDON PAIN [None]
